FAERS Safety Report 5398602-1 (Version None)
Quarter: 2007Q3

REPORT INFORMATION
  Report Type: 
  Country: None (occurrence: None)
  Receive Date: 20070726
  Receipt Date: 20070719
  Transmission Date: 20080115
  Serious: Yes (Other)
  Sender: FDA-Public Use
  Company Number: GR-ABBOTT-07P-066-0375288-00

PATIENT
  Age: 52 Year
  Sex: Female
  Weight: 60 kg

DRUGS (3)
  1. HUMIRA [Suspect]
     Indication: RHEUMATOID ARTHRITIS
     Route: 058
  2. AMOXICILLIN [Concomitant]
     Indication: PROPHYLAXIS
     Dates: start: 20070601, end: 20070601
  3. AMOXICILLIN [Concomitant]
     Indication: ORAL SURGERY

REACTIONS (5)
  - DERMATITIS BULLOUS [None]
  - ERYTHEMA [None]
  - ERYTHEMA MULTIFORME [None]
  - PRURITUS [None]
  - RASH [None]
